FAERS Safety Report 26164281 (Version 2)
Quarter: 2025Q4

REPORT INFORMATION
  Report Type: Spontaneous
  Country: US (occurrence: US)
  Receive Date: 20251216
  Receipt Date: 20251217
  Transmission Date: 20260117
  Serious: Yes (Hospitalization)
  Sender: SANOFI AVENTIS
  Company Number: US-SANOFI-02746891

PATIENT
  Age: 82 Year
  Sex: Female

DRUGS (2)
  1. KEVZARA [Suspect]
     Active Substance: SARILUMAB
     Indication: Polymyalgia rheumatica
     Dosage: UNK
     Dates: start: 2024
  2. KEVZARA [Suspect]
     Active Substance: SARILUMAB
     Indication: Mucopolysaccharidosis I
     Dosage: 200 MG, QOW
     Dates: start: 20251113

REACTIONS (6)
  - Hospitalisation [Unknown]
  - Cellulitis [Recovering/Resolving]
  - Pruritus [Recovering/Resolving]
  - Contusion [Recovering/Resolving]
  - Erythema [Recovering/Resolving]
  - Product use in unapproved indication [Unknown]

NARRATIVE: CASE EVENT DATE: 20240101
